FAERS Safety Report 21451846 (Version 1)
Quarter: 2022Q4

REPORT INFORMATION
  Report Type: Spontaneous
  Country: US (occurrence: None)
  Receive Date: 20221012
  Receipt Date: 20221012
  Transmission Date: 20230113
  Serious: Yes (Other)
  Sender: FDA-Public Use
  Company Number: None

PATIENT
  Age: 23 Year
  Sex: Female
  Weight: 67.5 kg

DRUGS (6)
  1. FLUVOXAMINE [Suspect]
     Active Substance: FLUVOXAMINE
     Indication: Obsessive-compulsive disorder
     Dosage: OTHER QUANTITY : 1 TABLET(S);?FREQUENCY : TWICE A DAY;?
     Route: 048
     Dates: start: 20220721, end: 20220817
  2. FLUVOXAMINE [Suspect]
     Active Substance: FLUVOXAMINE
     Indication: Anxiety
  3. FLUVOXAMINE [Suspect]
     Active Substance: FLUVOXAMINE
     Indication: Depression
  4. FLUVOXAMINE [Suspect]
     Active Substance: FLUVOXAMINE
     Indication: Dermatillomania
  5. N acetylcysteine [Concomitant]
  6. MAGNESIUM [Concomitant]
     Active Substance: MAGNESIUM

REACTIONS (5)
  - Fatigue [None]
  - Somnolence [None]
  - Vaginal haemorrhage [None]
  - Post procedural contusion [None]
  - Therapy cessation [None]

NARRATIVE: CASE EVENT DATE: 20220817
